FAERS Safety Report 24566067 (Version 1)
Quarter: 2024Q4

REPORT INFORMATION
  Report Type: Spontaneous
  Country: MY (occurrence: MY)
  Receive Date: 20241030
  Receipt Date: 20241030
  Transmission Date: 20250114
  Serious: Yes (Other)
  Sender: BAYER HEALTHCARE LLC
  Company Number: MY-BAYER-2024A152863

PATIENT
  Age: 52 Year
  Sex: Male

DRUGS (1)
  1. LORATADINE\PSEUDOEPHEDRINE SULFATE [Suspect]
     Active Substance: LORATADINE\PSEUDOEPHEDRINE SULFATE
     Indication: Rhinorrhoea
     Dosage: 1 DF
     Dates: start: 20241021, end: 20241021

REACTIONS (3)
  - Rash macular [None]
  - Skin burning sensation [None]
  - Burning sensation [None]

NARRATIVE: CASE EVENT DATE: 20241021
